FAERS Safety Report 20448688 (Version 2)
Quarter: 2022Q3

REPORT INFORMATION
  Report Type: Spontaneous
  Country: US (occurrence: US)
  Receive Date: 20220209
  Receipt Date: 20220926
  Transmission Date: 20221026
  Serious: Yes (Other)
  Sender: FDA-Public Use
  Company Number: US-PFIZER INC-202101392738

PATIENT
  Age: 47 Year
  Sex: Female
  Weight: 86.168 kg

DRUGS (1)
  1. SUTENT [Suspect]
     Active Substance: SUNITINIB MALATE
     Indication: Renal cell carcinoma
     Dosage: 40 MG, 1X/DAY
     Dates: start: 20210606, end: 20210813

REACTIONS (16)
  - Ulcer haemorrhage [Unknown]
  - Mouth swelling [Unknown]
  - Gingival swelling [Unknown]
  - Mouth haemorrhage [Unknown]
  - Pyrexia [Unknown]
  - Lip blister [Unknown]
  - Aphthous ulcer [Unknown]
  - Nasal discomfort [Unknown]
  - Nasal oedema [Unknown]
  - Anaemia [Unknown]
  - Constipation [Unknown]
  - Stomatitis [Unknown]
  - Gingival disorder [Unknown]
  - Dental discomfort [Unknown]
  - Off label use [Unknown]
  - Fatigue [Unknown]

NARRATIVE: CASE EVENT DATE: 20210606
